FAERS Safety Report 13417874 (Version 1)
Quarter: 2017Q2

REPORT INFORMATION
  Report Type: Spontaneous
  Country: US (occurrence: US)
  Receive Date: 20170407
  Receipt Date: 20170407
  Transmission Date: 20170830
  Serious: Yes (Other)
  Sender: FDA-Public Use
  Company Number: US-BAXALTA-2017BLT002797

PATIENT
  Age: 23 Year
  Sex: Male

DRUGS (1)
  1. ADVATE [Suspect]
     Active Substance: ANTIHEMOPHILIC FACTOR, HUMAN RECOMBINANT
     Indication: HAEMOPHILIA
     Dosage: 5000 U, EVERY 2 DY
     Route: 065

REACTIONS (4)
  - Inhibiting antibodies positive [Unknown]
  - Drug use disorder [Unknown]
  - Haemarthrosis [Unknown]
  - Pain [Unknown]
